FAERS Safety Report 5880051-0 (Version None)
Quarter: 2008Q3

REPORT INFORMATION
  Report Type: 
  Country: None (occurrence: None)
  Receive Date: 20080911
  Receipt Date: 20080911
  Transmission Date: 20090109
  Serious: Yes (Hospitalization)
  Sender: FDA-Public Use
  Company Number: None

PATIENT
  Sex: Female
  Weight: 73 kg

DRUGS (14)
  1. ONTAK [Suspect]
  2. NEXIUM [Concomitant]
  3. SIMVASTATIN [Concomitant]
  4. MEFORMIN [Concomitant]
  5. GLIPIZIDE [Concomitant]
  6. POTASSIUM CHLORIDE [Concomitant]
  7. M.V.I. [Concomitant]
  8. VITAMIN B6 [Concomitant]
  9. ASCORBIC ACID [Concomitant]
  10. FISH OIL [Concomitant]
  11. CALCIUM + D [Concomitant]
  12. PINE NUT OIL [Concomitant]
  13. TYLENOL (CAPLET) [Concomitant]
  14. OXYCONTIN [Concomitant]

REACTIONS (3)
  - ASCITES [None]
  - PERITONITIS BACTERIAL [None]
  - STAPHYLOCOCCAL INFECTION [None]
